FAERS Safety Report 16927498 (Version 1)
Quarter: 2019Q4

REPORT INFORMATION
  Report Type: Spontaneous
  Country: US (occurrence: US)
  Receive Date: 20191016
  Receipt Date: 20191016
  Transmission Date: 20200122
  Serious: Yes (Other)
  Sender: FDA-Public Use
  Company Number: US-BEH-2019107996

PATIENT
  Age: 38 Year
  Sex: Female

DRUGS (1)
  1. HUMAN IMMUNOGLOBULIN (INN) [Suspect]
     Active Substance: HUMAN IMMUNOGLOBULIN G
     Indication: AUTOIMMUNE DISORDER
     Route: 042

REACTIONS (7)
  - Cavernous sinus thrombosis [Recovered/Resolved]
  - Sepsis [Unknown]
  - Ophthalmic vein thrombosis [Unknown]
  - Pulmonary embolism [Unknown]
  - Tachypnoea [Unknown]
  - No adverse event [Unknown]
  - Product use in unapproved indication [Unknown]
